FAERS Safety Report 10215327 (Version 1)
Quarter: 2014Q2

REPORT INFORMATION
  Report Type: Report from Study
  Country: US (occurrence: US)
  Receive Date: 20140603
  Receipt Date: 20140603
  Transmission Date: 20141212
  Serious: Yes (Death)
  Sender: FDA-Public Use
  Company Number: US-ROCHE-1411025

PATIENT
  Age: 80 Year
  Sex: Female

DRUGS (2)
  1. AVASTIN [Suspect]
     Indication: NON-SMALL CELL LUNG CANCER
     Dosage: FIRST LINE DOSE
     Route: 065
  2. ALIMTA [Concomitant]

REACTIONS (1)
  - Death [Fatal]
